FAERS Safety Report 5620068-4 (Version None)
Quarter: 2008Q1

REPORT INFORMATION
  Report Type: 
  Country: None (occurrence: None)
  Receive Date: 20080208
  Receipt Date: 20080128
  Transmission Date: 20080703
  Serious: Yes (Other)
  Sender: FDA-Public Use
  Company Number: US-PFIZER INC-2008009934

PATIENT
  Sex: Male
  Weight: 72.6 kg

DRUGS (8)
  1. LYRICA [Suspect]
     Indication: HERPES ZOSTER
     Dates: start: 20080107, end: 20080111
  2. NADOLOL [Concomitant]
  3. SPIRONOLACTONE [Concomitant]
  4. LASIX [Concomitant]
  5. VITAMIN B-12 [Concomitant]
  6. FOLIC ACID [Concomitant]
  7. ACIDOPHILUS [Concomitant]
  8. BEANO [Concomitant]

REACTIONS (1)
  - BLOOD PRESSURE INCREASED [None]
